FAERS Safety Report 5771894-2 (Version None)
Quarter: 2008Q2

REPORT INFORMATION
  Report Type: 
  Country: None (occurrence: None)
  Receive Date: 20080612
  Receipt Date: 20080612
  Transmission Date: 20081010
  Serious: No
  Sender: FDA-Public Use
  Company Number: None

PATIENT
  Age: 86 Year
  Sex: Male
  Weight: 130 kg

DRUGS (2)
  1. METOPROLOL TARTRATE [Suspect]
     Dosage: 3 TAB BID PO
     Route: 048
     Dates: start: 20080516, end: 20080516
  2. DILTIAZEM HCL [Suspect]
     Dosage: 1 TAB EVERY DAY PO
     Route: 048
     Dates: start: 20080512, end: 20080518

REACTIONS (2)
  - BRADYCARDIA [None]
  - HYPOTENSION [None]
